FAERS Safety Report 25834933 (Version 2)
Quarter: 2025Q4

REPORT INFORMATION
  Report Type: Report from Study
  Country: EU (occurrence: EU)
  Receive Date: 20250923
  Receipt Date: 20251026
  Transmission Date: 20260118
  Serious: Yes (Death, Life-Threatening, Hospitalization, Other)
  Sender: JOHNSON AND JOHNSON
  Company Number: EU-JNJFOC-20250918935

PATIENT
  Age: 81 Year
  Sex: Male

DRUGS (3)
  1. TECLISTAMAB [Suspect]
     Active Substance: TECLISTAMAB
     Indication: Plasma cell myeloma
     Dosage: STEP-UP DOSE 1
     Route: 065
     Dates: start: 20241120
  2. TECLISTAMAB [Suspect]
     Active Substance: TECLISTAMAB
     Dosage: STEP-UP DOSE 2
     Route: 065
     Dates: start: 20241122
  3. TECLISTAMAB [Suspect]
     Active Substance: TECLISTAMAB
     Dosage: FIRST MAINTENANCE DOSE
     Route: 065
     Dates: start: 20241213

REACTIONS (9)
  - Pneumonia [Fatal]
  - Cytokine release syndrome [Recovered/Resolved]
  - Sinus node dysfunction [Recovered/Resolved]
  - Hypokalaemia [Not Recovered/Not Resolved]
  - Gamma-glutamyltransferase increased [Recovered/Resolved]
  - Anaemia [Not Recovered/Not Resolved]
  - Neutrophil count decreased [Recovered/Resolved]
  - Hypomagnesaemia [Recovered/Resolved]
  - Platelet count decreased [Not Recovered/Not Resolved]

NARRATIVE: CASE EVENT DATE: 20241121
